FAERS Safety Report 22153283 (Version 1)
Quarter: 2023Q1

REPORT INFORMATION
  Report Type: Report from Study
  Country: US (occurrence: US)
  Receive Date: 20230329
  Receipt Date: 20230329
  Transmission Date: 20230418
  Serious: Yes (Other)
  Sender: FDA-Public Use
  Company Number: US-SEATTLE GENETICS-2023SGN03212

PATIENT
  Age: 41 Year
  Sex: Female

DRUGS (1)
  1. TISOTUMAB VEDOTIN [Suspect]
     Active Substance: TISOTUMAB VEDOTIN
     Indication: Cervix carcinoma
     Route: 065

REACTIONS (2)
  - Kidney infection [Unknown]
  - Nephrostomy [Unknown]

NARRATIVE: CASE EVENT DATE: 20230101
